FAERS Safety Report 16638666 (Version 2)
Quarter: 2019Q3

REPORT INFORMATION
  Report Type: Spontaneous
  Country: US (occurrence: US)
  Receive Date: 20190726
  Receipt Date: 20190826
  Transmission Date: 20191004
  Serious: No
  Sender: FDA-Public Use
  Company Number: US-ELI_LILLY_AND_COMPANY-US201907014238

PATIENT
  Sex: Female

DRUGS (1)
  1. EMGALITY [Suspect]
     Active Substance: GALCANEZUMAB-GNLM
     Indication: PRODUCT USED FOR UNKNOWN INDICATION
     Dosage: 1 DOSAGE FORM, UNKNOWN
     Route: 065
     Dates: start: 20190501

REACTIONS (9)
  - Injection site erythema [Unknown]
  - Localised infection [Recovering/Resolving]
  - Contusion [Unknown]
  - Injection site haemorrhage [Unknown]
  - Injection site mass [Unknown]
  - Erythema [Unknown]
  - Pruritus generalised [Not Recovered/Not Resolved]
  - Injection site pruritus [Unknown]
  - Injury [Unknown]
